FAERS Safety Report 13835484 (Version 1)
Quarter: 2017Q3

REPORT INFORMATION
  Report Type: Spontaneous
  Country: US (occurrence: US)
  Receive Date: 20170804
  Receipt Date: 20170804
  Transmission Date: 20171127
  Serious: Yes (Other)
  Sender: FDA-Public Use
  Company Number: US-SUN PHARMACEUTICAL INDUSTRIES LTD-2017US-147117

PATIENT
  Age: 44 Year
  Sex: Female

DRUGS (3)
  1. OXYCODONE [Suspect]
     Active Substance: OXYCODONE
     Indication: HEADACHE
     Dosage: 40 MG, TID
     Route: 065
     Dates: start: 2000, end: 2008
  2. HYDROCODONE [Suspect]
     Active Substance: HYDROCODONE
     Indication: HEADACHE
     Dosage: TWO TO FOUR TIMES DAILY
     Route: 065
     Dates: start: 2000, end: 2008
  3. DULOXETINE. [Concomitant]
     Active Substance: DULOXETINE
     Indication: DEPRESSION
     Dosage: 20 MG, DAILY
     Route: 065

REACTIONS (1)
  - Sleep apnoea syndrome [Recovering/Resolving]
